FAERS Safety Report 4837848-5 (Version None)
Quarter: 2005Q4

REPORT INFORMATION
  Report Type: 
  Country: None (occurrence: None)
  Receive Date: 20051024
  Receipt Date: 20050924
  Transmission Date: 20060501
  Serious: No
  Sender: FDA-Public Use
  Company Number: 218051

PATIENT
  Age: 49 Year
  Sex: Male
  Weight: 81.6 kg

DRUGS (6)
  1. XOLAIR [Suspect]
     Indication: ASTHMA
     Dosage: Q2W
     Dates: start: 20050701
  2. ADVAIR DISKUS 100/50 [Concomitant]
  3. SINGULAIR [Concomitant]
  4. FLONASE [Concomitant]
  5. ZYRTEC-D 12 HOUR [Concomitant]
  6. ALBUTEROL (ALBUTEROL, ALBUTEROL SULFATE) [Concomitant]

REACTIONS (1)
  - DRUG INEFFECTIVE [None]
